FAERS Safety Report 6786239-9 (Version None)
Quarter: 2010Q2

REPORT INFORMATION
  Report Type: 
  Country: None (occurrence: None)
  Receive Date: 20100623
  Receipt Date: 20100611
  Transmission Date: 20101027
  Serious: Yes (Life-Threatening)
  Sender: FDA-Public Use
  Company Number: JP-ROCHE-687875

PATIENT
  Sex: Male
  Weight: 50 kg

DRUGS (9)
  1. AVASTIN [Suspect]
     Indication: RECTAL CANCER METASTATIC
     Route: 041
     Dates: start: 20100119, end: 20100119
  2. ELPLAT [Concomitant]
     Route: 041
     Dates: start: 20100105, end: 20100105
  3. ELPLAT [Concomitant]
     Route: 041
     Dates: start: 20100119, end: 20100119
  4. ISOVORIN [Concomitant]
     Route: 041
     Dates: start: 20100105, end: 20100105
  5. ISOVORIN [Concomitant]
     Route: 041
     Dates: start: 20100119, end: 20100119
  6. FLUOROURACIL [Concomitant]
     Route: 040
     Dates: start: 20100105, end: 20100105
  7. FLUOROURACIL [Concomitant]
     Route: 040
     Dates: start: 20100119, end: 20100119
  8. FLUOROURACIL [Concomitant]
     Route: 041
     Dates: start: 20100105, end: 20100107
  9. FLUOROURACIL [Concomitant]
     Route: 041
     Dates: start: 20100119, end: 20100121

REACTIONS (5)
  - DECREASED APPETITE [None]
  - DIARRHOEA [None]
  - NAUSEA [None]
  - RENAL FAILURE ACUTE [None]
  - VOMITING [None]
